FAERS Safety Report 5030292-X (Version None)
Quarter: 2006Q2

REPORT INFORMATION
  Report Type: 
  Country: None (occurrence: None)
  Receive Date: 20060615
  Receipt Date: 20060601
  Transmission Date: 20061013
  Serious: Yes (Death)
  Sender: FDA-Public Use
  Company Number: 054

PATIENT
  Sex: Female

DRUGS (1)
  1. FAZACLO ODT [Suspect]
     Dosage: 200 MG PO DAILY
     Route: 048
     Dates: start: 20060505, end: 20060525

REACTIONS (1)
  - BRAIN NEOPLASM [None]
